FAERS Safety Report 13609924 (Version 5)
Quarter: 2017Q4

REPORT INFORMATION
  Report Type: Report from Study
  Country: JP (occurrence: JP)
  Receive Date: 20170603
  Receipt Date: 20171006
  Transmission Date: 20180320
  Serious: Yes (Other)
  Sender: FDA-Public Use
  Company Number: JP-AMGEN-JPNCT2017078714

PATIENT
  Age: 71 Year
  Sex: Female
  Weight: 59.4 kg

DRUGS (8)
  1. PANITUMUMAB [Suspect]
     Active Substance: PANITUMUMAB
     Indication: COLON CANCER
     Dosage: 6 MG/KG, Q2WK
     Route: 041
     Dates: start: 20170310, end: 20170324
  2. PANITUMUMAB [Suspect]
     Active Substance: PANITUMUMAB
     Dosage: 6 MG/KG, Q2WK
     Route: 041
     Dates: start: 20170421
  3. TIPIRACIL HYDROCHLORIDE W/TRIFLURIDINE [Suspect]
     Active Substance: TIPIRACIL HYDROCHLORIDE\TRIFLURIDINE
     Dosage: 25 MG/M2, BID
     Route: 048
     Dates: start: 20170630
  4. TIPIRACIL HYDROCHLORIDE W/TRIFLURIDINE [Suspect]
     Active Substance: TIPIRACIL HYDROCHLORIDE\TRIFLURIDINE
     Indication: COLON CANCER
     Dosage: 35 MG/M2, BID
     Route: 048
     Dates: start: 20170310
  5. TIPIRACIL HYDROCHLORIDE W/TRIFLURIDINE [Suspect]
     Active Substance: TIPIRACIL HYDROCHLORIDE\TRIFLURIDINE
     Dosage: 35 MG/M2, BID
     Route: 048
     Dates: start: 20170414
  6. TIPIRACIL HYDROCHLORIDE W/TRIFLURIDINE [Suspect]
     Active Substance: TIPIRACIL HYDROCHLORIDE\TRIFLURIDINE
     Dosage: 25 MG/M2, BID
     Route: 048
     Dates: start: 20170915
  7. TIPIRACIL HYDROCHLORIDE W/TRIFLURIDINE [Suspect]
     Active Substance: TIPIRACIL HYDROCHLORIDE\TRIFLURIDINE
     Dosage: 30 MG/M2, BID
     Route: 048
     Dates: start: 20170526
  8. TIPIRACIL HYDROCHLORIDE W/TRIFLURIDINE [Suspect]
     Active Substance: TIPIRACIL HYDROCHLORIDE\TRIFLURIDINE
     Dosage: 25 MG/M2, BID
     Route: 048
     Dates: start: 20170804

REACTIONS (6)
  - Abdominal pain upper [Unknown]
  - Dry skin [Unknown]
  - Neutrophil count decreased [Unknown]
  - Paronychia [Unknown]
  - Fatigue [Unknown]
  - Decreased appetite [Unknown]

NARRATIVE: CASE EVENT DATE: 20170324
